FAERS Safety Report 5247163-6 (Version None)
Quarter: 2007Q1

REPORT INFORMATION
  Report Type: 
  Country: None (occurrence: None)
  Receive Date: 20070221
  Receipt Date: 20070208
  Transmission Date: 20070707
  Serious: Yes (Other)
  Sender: FDA-Public Use
  Company Number: 2006300625

PATIENT
  Age: 3 Year
  Sex: Female
  Weight: 45.4 kg

DRUGS (6)
  1. BENADRYL [Suspect]
     Indication: HYPERSENSITIVITY
     Dosage: 50MG EVERY 6 HOURS (50 MG), ORAL
     Route: 048
     Dates: start: 19280101
  2. ALDACTONE [Suspect]
     Indication: HYPERTENSION
     Dosage: 25 MG (25 MG)
     Dates: start: 19980101
  3. SYNTHROID [Suspect]
     Indication: HYPOTHYROIDISM
     Dosage: 0.3 MG DECREASED TO 0.2 MG (0.3 MG)
  4. THEO-DUR [Suspect]
     Indication: ASTHMA
     Dosage: EVERY 12 HOURS - TWICE DAILY (2 IN 1 D)
  5. PREDNISONE TAB [Suspect]
     Indication: PNEUMONIA
     Dosage: INTRAVENOUS
     Route: 042
  6. THYROID TAB [Suspect]
     Dosage: ORAL
     Route: 048

REACTIONS (26)
  - ASTHMA [None]
  - BILE DUCT OBSTRUCTION [None]
  - BLOOD CALCIUM INCREASED [None]
  - BLOOD CREATININE INCREASED [None]
  - BLOOD GLUCOSE INCREASED [None]
  - BLOOD PRESSURE DIASTOLIC DECREASED [None]
  - BLOOD PRESSURE SYSTOLIC INCREASED [None]
  - BLOOD THYROID STIMULATING HORMONE DECREASED [None]
  - BLOOD UREA INCREASED [None]
  - DRUG EFFECT DECREASED [None]
  - DRUG HYPERSENSITIVITY [None]
  - ENDOCRINE DISORDER [None]
  - FULL BLOOD COUNT DECREASED [None]
  - GASTRIC PH DECREASED [None]
  - HAEMATOCRIT DECREASED [None]
  - HAEMOGLOBIN DECREASED [None]
  - HYPERTENSION [None]
  - HYPOTHYROIDISM [None]
  - MULTI-ORGAN DISORDER [None]
  - PNEUMONIA [None]
  - POLIOMYELITIS [None]
  - POST POLIO SYNDROME [None]
  - RENAL DISORDER [None]
  - THYROXINE FREE INCREASED [None]
  - UNEVALUABLE EVENT [None]
  - VOMITING [None]
